FAERS Safety Report 6603792-6 (Version None)
Quarter: 2010Q1

REPORT INFORMATION
  Report Type: 
  Country: None (occurrence: None)
  Receive Date: 20100226
  Receipt Date: 20090202
  Transmission Date: 20100710
  Serious: No
  Sender: FDA-Public Use
  Company Number: A0766330A

PATIENT
  Age: 56 Year
  Sex: Female

DRUGS (7)
  1. LAMICTAL CD [Suspect]
     Indication: BIPOLAR DISORDER
     Dosage: 50MG PER DAY
     Route: 048
     Dates: start: 20081201, end: 20081201
  2. PREDNISONE TAB [Concomitant]
  3. FLUTICASONE NASAL SPRAY [Concomitant]
  4. MINOCYCLINE HCL [Concomitant]
  5. NEURONTIN [Concomitant]
  6. AMBIEN [Concomitant]
  7. ATIVAN [Concomitant]

REACTIONS (1)
  - RASH [None]
